FAERS Safety Report 4429333-X (Version None)
Quarter: 2004Q3

REPORT INFORMATION
  Report Type: 
  Country: None (occurrence: None)
  Receive Date: 20040818
  Receipt Date: 20040810
  Transmission Date: 20050211
  Serious: Yes (Hospitalization)
  Sender: FDA-Public Use
  Company Number: DL2004202

PATIENT
  Sex: Female

DRUGS (2)
  1. MIFEPRITONE TABLETS, 200 MG (DANCO LABS) [Suspect]
     Indication: ABORTION INDUCED
     Dosage: 200 MG, ORAL
     Route: 048
     Dates: start: 20040107
  2. MISOPROSTOL [Suspect]
     Dosage: 800 MCG, VAGINAL
     Route: 067
     Dates: start: 20040109

REACTIONS (11)
  - ABDOMINAL PAIN LOWER [None]
  - DRUG EXPOSURE DURING PREGNANCY [None]
  - HAEMATOCRIT DECREASED [None]
  - HAEMOGLOBIN DECREASED [None]
  - HAEMORRHAGE [None]
  - INTRA-ABDOMINAL HAEMORRHAGE [None]
  - LOSS OF CONSCIOUSNESS [None]
  - PELVIC PERITONEAL ADHESIONS [None]
  - RUPTURED ECTOPIC PREGNANCY [None]
  - ULTRASOUND SCAN ABNORMAL [None]
  - WHITE BLOOD CELL COUNT INCREASED [None]
